FAERS Safety Report 10508412 (Version 2)
Quarter: 2014Q4

REPORT INFORMATION
  Report Type: Spontaneous
  Country: CA (occurrence: US)
  Receive Date: 20141009
  Receipt Date: 20141016
  Transmission Date: 20150528
  Serious: Yes (Life-Threatening)
  Sender: FDA-Public Use
  Company Number: US-PFIZER INC-2014276184

PATIENT
  Age: 53 Year
  Sex: Female

DRUGS (6)
  1. AMIODARONE HCL [Suspect]
     Active Substance: AMIODARONE HYDROCHLORIDE
     Indication: ARRHYTHMIA PROPHYLAXIS
     Dosage: 200 MG, 2X/DAY
     Route: 048
  2. DARUNAVIR [Interacting]
     Active Substance: DARUNAVIR
     Indication: HIV INFECTION
     Dosage: 600 MG, 2X/DAY
  3. LAMIVUDINE. [Interacting]
     Active Substance: LAMIVUDINE
     Indication: HIV INFECTION
     Dosage: 150 MG, DAILY
  4. ABACAVIR [Interacting]
     Active Substance: ABACAVIR
     Indication: HIV INFECTION
     Dosage: 300 MG, 2X/DAY
  5. RALTEGRAVIR [Interacting]
     Active Substance: RALTEGRAVIR
     Indication: HIV INFECTION
     Dosage: 400 MG, 1X/DAY
  6. METOPROLOL [Concomitant]
     Active Substance: METOPROLOL
     Indication: ARRHYTHMIA PROPHYLAXIS
     Dosage: 12.5 MG, 2X/DAY
     Route: 048

REACTIONS (4)
  - Drug interaction [Unknown]
  - Cardiac arrest [Recovered/Resolved]
  - Torsade de pointes [Recovered/Resolved]
  - Electrocardiogram QT prolonged [Recovered/Resolved]
